FAERS Safety Report 15736533 (Version 1)
Quarter: 2018Q4

REPORT INFORMATION
  Report Type: Spontaneous
  Country: US (occurrence: US)
  Receive Date: 20181204
  Receipt Date: 20181204
  Transmission Date: 20190205
  Serious: Yes (Other)
  Sender: FDA-Public Use
  Company Number: None

PATIENT
  Age: 49 Year
  Sex: Female
  Weight: 62.1 kg

DRUGS (8)
  1. VITAMIN D [Concomitant]
     Active Substance: CHOLECALCIFEROL
  2. VITAMIN C [Concomitant]
     Active Substance: ASCORBIC ACID
  3. CIPROFLOXACIN. [Suspect]
     Active Substance: CIPROFLOXACIN
     Indication: POST PROCEDURAL INFECTION
     Dosage: ?          QUANTITY:1 TABLET(S);?
     Route: 048
  4. IRON [Concomitant]
     Active Substance: IRON
  5. PENTOXICILLIN [Concomitant]
  6. MONTELUKAST [Concomitant]
     Active Substance: MONTELUKAST SODIUM
  7. LETRAZOLE [Concomitant]
     Active Substance: LETROZOLE
  8. CALCIUM [Suspect]
     Active Substance: CALCIUM

REACTIONS (7)
  - Tremor [None]
  - Tinnitus [None]
  - Dizziness [None]
  - Pelvic pain [None]
  - Nausea [None]
  - Arthralgia [None]
  - Pain [None]

NARRATIVE: CASE EVENT DATE: 20181130
